FAERS Safety Report 7102037-0 (Version None)
Quarter: 2010Q4

REPORT INFORMATION
  Report Type: 
  Country: None (occurrence: None)
  Receive Date: 20101115
  Receipt Date: 20101109
  Transmission Date: 20110411
  Serious: Yes (Other)
  Sender: FDA-Public Use
  Company Number: GB-ROCHE-736599

PATIENT
  Sex: Male
  Weight: 71 kg

DRUGS (5)
  1. PEGASYS [Suspect]
     Indication: HEPATITIS C
     Route: 058
  2. PEGASYS [Suspect]
     Route: 058
     Dates: start: 20100927
  3. COPEGUS [Suspect]
     Indication: HEPATITIS C
     Route: 048
     Dates: start: 20100927
  4. CITALOPRAM [Concomitant]
     Indication: DEPRESSION
     Route: 048
     Dates: start: 20100905
  5. ATRIPLA [Concomitant]
     Route: 048
     Dates: start: 20030101

REACTIONS (2)
  - HAEMATURIA [None]
  - KIDNEY INFECTION [None]
